FAERS Safety Report 5227134-6 (Version None)
Quarter: 2007Q1

REPORT INFORMATION
  Report Type: 
  Country: None (occurrence: None)
  Receive Date: 20070201
  Receipt Date: 20070201
  Transmission Date: 20070707
  Serious: Yes (Hospitalization)
  Sender: FDA-Public Use
  Company Number: None

PATIENT
  Age: 65 Year
  Sex: Male
  Weight: 91.3 kg

DRUGS (1)
  1. CARBAMAZEPINE [Suspect]
     Dosage: 400 MG BID PO
     Route: 048

REACTIONS (3)
  - CONDITION AGGRAVATED [None]
  - CONVULSION [None]
  - TREATMENT NONCOMPLIANCE [None]
